FAERS Safety Report 22229930 (Version 1)
Quarter: 2023Q2

REPORT INFORMATION
  Report Type: Spontaneous
  Country: US (occurrence: None)
  Receive Date: 20230418
  Receipt Date: 20230418
  Transmission Date: 20230721
  Serious: No
  Sender: FDA-Public Use
  Company Number: None

PATIENT
  Age: 58 Year
  Sex: Female
  Weight: 90.72 kg

DRUGS (10)
  1. IBRANCE [Suspect]
     Active Substance: PALBOCICLIB
     Indication: Breast cancer female
     Dosage: FREQUENCY : ONCE;?
     Route: 048
  2. LEVOTHYROXINE [Concomitant]
  3. ANASTROZOLE [Concomitant]
  4. LISINOPRIL [Concomitant]
  5. B COMPLEX [Concomitant]
  6. CANNABIS [Concomitant]
  7. BLACK CUMIN [Concomitant]
  8. TUMERIC ROOT POWDER [Concomitant]
  9. GINGER [Concomitant]
  10. NATURAL C/ROSE HIPS [Concomitant]

REACTIONS (1)
  - Drug ineffective [None]
